FAERS Safety Report 5246861-8 (Version None)
Quarter: 2007Q1

REPORT INFORMATION
  Report Type: 
  Country: None (occurrence: None)
  Receive Date: 20070226
  Receipt Date: 20070214
  Transmission Date: 20070707
  Serious: Yes (Other)
  Sender: FDA-Public Use
  Company Number: AU-PFIZER INC-2007013266

PATIENT
  Age: 43 Year
  Sex: Male

DRUGS (2)
  1. LYRICA [Suspect]
     Indication: NEURALGIA
     Route: 048
  2. BRUFEN [Suspect]

REACTIONS (1)
  - HAEMORRHAGE [None]
